FAERS Safety Report 6057438-9 (Version None)
Quarter: 2009Q1

REPORT INFORMATION
  Report Type: 
  Country: None (occurrence: None)
  Receive Date: 20090129
  Receipt Date: 20090122
  Transmission Date: 20090719
  Serious: Yes (Hospitalization, Other)
  Sender: FDA-Public Use
  Company Number: JP-BAYER-200811459BYL

PATIENT
  Age: 72 Year
  Sex: Female
  Weight: 50 kg

DRUGS (11)
  1. NEXAVAR [Suspect]
     Indication: RENAL CELL CARCINOMA STAGE IV
     Dosage: UNIT DOSE: 200 MG
     Route: 048
     Dates: start: 20080513, end: 20080625
  2. NEXAVAR [Suspect]
     Dosage: TOTAL DAILY DOSE: 400 MG  UNIT DOSE: 200 MG
     Route: 048
     Dates: start: 20080714
  3. NEXAVAR [Suspect]
     Dosage: UNIT DOSE: 200 MG
     Route: 048
  4. NEXAVAR [Suspect]
     Dosage: UNIT DOSE: 200 MG
     Route: 048
     Dates: start: 20090116
  5. FERROMIA [Concomitant]
     Route: 048
     Dates: start: 20080522
  6. MAGMITT [Concomitant]
     Route: 048
     Dates: start: 20080513
  7. ADJUST A [Concomitant]
     Route: 048
     Dates: start: 20080513
  8. NOVOLIN R [Concomitant]
     Route: 058
     Dates: start: 20080513
  9. MILTAX [Concomitant]
     Route: 062
     Dates: start: 20080513
  10. DAONIL [Concomitant]
     Route: 048
     Dates: start: 20080719
  11. BASEN OD [Concomitant]
     Route: 048
     Dates: start: 20080829

REACTIONS (7)
  - BLOOD AMYLASE INCREASED [None]
  - GASTRIC ULCER [None]
  - HEPATIC ENZYME INCREASED [None]
  - HEPATIC FUNCTION ABNORMAL [None]
  - HYPERTENSION [None]
  - LIPASE INCREASED [None]
  - PALMAR-PLANTAR ERYTHRODYSAESTHESIA SYNDROME [None]
